FAERS Safety Report 20905734 (Version 1)
Quarter: 2022Q2

REPORT INFORMATION
  Report Type: Spontaneous
  Country: ES (occurrence: ES)
  Receive Date: 20220602
  Receipt Date: 20220602
  Transmission Date: 20220721
  Serious: Yes (Life-Threatening, Hospitalization)
  Sender: FDA-Public Use
  Company Number: None

PATIENT
  Age: 17 Year
  Sex: Male

DRUGS (2)
  1. FLUDARABINE [Interacting]
     Active Substance: FLUDARABINE PHOSPHATE
     Indication: Acute myeloid leukaemia
     Dosage: THERAPY DURATION : 1 DAYS, (3698A)
     Route: 065
     Dates: start: 20220113, end: 20220113
  2. CYTARABINE [Interacting]
     Active Substance: CYTARABINE
     Indication: Acute myeloid leukaemia
     Dosage: THERAPY DURATION : 1 DAYS, (124A)
     Route: 042
     Dates: start: 20220113, end: 20220113

REACTIONS (3)
  - Agranulocytosis [Recovered/Resolved]
  - Pyrexia [Recovered/Resolved]
  - Drug interaction [Unknown]

NARRATIVE: CASE EVENT DATE: 20220203
